FAERS Safety Report 6426578-4 (Version None)
Quarter: 2009Q4

REPORT INFORMATION
  Report Type: 
  Country: None (occurrence: None)
  Receive Date: 20091030
  Receipt Date: 20090511
  Transmission Date: 20100525
  Serious: Yes (Other)
  Sender: FDA-Public Use
  Company Number: CL-51-2009

PATIENT
  Age: 18 Year
  Sex: Female

DRUGS (2)
  1. METRONIDAZOLE [Suspect]
     Indication: URINARY TRACT INFECTION
     Dosage: 400 MG TDS
  2. OFLOXACIN [Suspect]
     Indication: URINARY TRACT INFECTION
     Dosage: 400 MG BD

REACTIONS (6)
  - AREFLEXIA [None]
  - CONFUSIONAL STATE [None]
  - FEAR [None]
  - IMMOBILE [None]
  - PYREXIA [None]
  - SPEECH DISORDER [None]
